FAERS Safety Report 5936263-0 (Version None)
Quarter: 2008Q4

REPORT INFORMATION
  Report Type: 
  Country: None (occurrence: None)
  Receive Date: 20081030
  Receipt Date: 20081020
  Transmission Date: 20090506
  Serious: Yes (Hospitalization, Other)
  Sender: FDA-Public Use
  Company Number: US-PFIZER INC-2008019890

PATIENT
  Sex: Male
  Weight: 78.181 kg

DRUGS (14)
  1. LIPITOR [Suspect]
     Indication: BLOOD CHOLESTEROL INCREASED
     Dates: start: 19970101
  2. DRUG, UNSPECIFIED [Suspect]
     Indication: PROSTATIC DISORDER
  3. COREG [Concomitant]
  4. TRICOR [Concomitant]
  5. WARFARIN SODIUM [Concomitant]
  6. DARVOCET-N 100 [Concomitant]
  7. METFORMIN HYDROCHLORIDE [Concomitant]
  8. VALIUM [Concomitant]
  9. PRILOSEC [Concomitant]
  10. AMBIEN [Concomitant]
  11. MIRALAX [Concomitant]
  12. BENTYL [Concomitant]
  13. PREDNISONE TAB [Concomitant]
  14. AMOXICILLIN [Concomitant]

REACTIONS (16)
  - ARRHYTHMIA [None]
  - ARTHRALGIA [None]
  - BLOOD CHOLESTEROL INCREASED [None]
  - DIABETES MELLITUS [None]
  - EJACULATION DISORDER [None]
  - FATIGUE [None]
  - MITRAL VALVE DISEASE [None]
  - MYALGIA [None]
  - PROCEDURAL PAIN [None]
  - PROSTATIC DISORDER [None]
  - PROSTATIC SPECIFIC ANTIGEN INCREASED [None]
  - RETROGRADE EJACULATION [None]
  - STAPHYLOCOCCAL INFECTION [None]
  - SUTURE RUPTURE [None]
  - VASCULAR GRAFT [None]
  - WALKING DISABILITY [None]
